FAERS Safety Report 8433609 (Version 2)
Quarter: 2012Q4

REPORT INFORMATION
  Report Type: 
  Country: DK (occurrence: DK)
  Receive Date: 20120229
  Receipt Date: 20121221
  Transmission Date: 20130627
  Serious: Yes (Hospitalization)
  Sender: FDA-Public Use
  Company Number: DK-ABBOTT-12P-044-0908723-00

PATIENT
  Age: 35 Year
  Sex: Male
  Weight: 57 kg

DRUGS (1)
  1. MARINOL [Suspect]
     Indication: DIABETIC NEUROPATHY
     Dosage: 2-3 x 2 daily
     Route: 048
     Dates: start: 20101124

REACTIONS (4)
  - Affective disorder [Unknown]
  - Intentional overdose [Unknown]
  - Aggression [Unknown]
  - Suicidal ideation [Unknown]
